FAERS Safety Report 6855911-4 (Version None)
Quarter: 2010Q3

REPORT INFORMATION
  Report Type: 
  Country: None (occurrence: None)
  Receive Date: 20100719
  Receipt Date: 20100712
  Transmission Date: 20110219
  Serious: Yes (Hospitalization, Other)
  Sender: FDA-Public Use
  Company Number: BR-ELI_LILLY_AND_COMPANY-BR201005000072

PATIENT
  Sex: Male
  Weight: 44 kg

DRUGS (6)
  1. PEMETREXED [Suspect]
     Indication: LUNG NEOPLASM MALIGNANT
     Dosage: 500 MG/M2, OTHER
     Route: 042
     Dates: start: 20091021
  2. CARBOPLATIN [Suspect]
     Indication: LUNG NEOPLASM MALIGNANT
     Dosage: 5 D/F, OTHER
     Route: 042
     Dates: start: 20091021
  3. DEXAMETHASONE [Concomitant]
     Indication: SUPPLEMENTATION THERAPY
     Dosage: 4 MG, 2/D
     Route: 065
     Dates: start: 20091020
  4. FOLIC ACID [Concomitant]
     Indication: SUPPLEMENTATION THERAPY
     Dosage: 400 UG, UNK
     Dates: start: 20091016
  5. VITAMIN B-12 [Concomitant]
     Indication: SUPPLEMENTATION THERAPY
     Dosage: 1000 UG, UNK
     Dates: start: 20090918
  6. DIMORF [Concomitant]
     Indication: PAIN
     Dosage: 20 MG, UNK
     Dates: start: 20090926

REACTIONS (2)
  - DYSPNOEA [None]
  - NEUTROPENIA [None]
